FAERS Safety Report 14071544 (Version 2)
Quarter: 2018Q1

REPORT INFORMATION
  Report Type: Report from Study
  Country: US (occurrence: US)
  Receive Date: 20171011
  Receipt Date: 20180124
  Transmission Date: 20180508
  Serious: No
  Sender: FDA-Public Use
  Company Number: US-AMGEN-USASL2017152344

PATIENT
  Age: 48 Year
  Sex: Female

DRUGS (1)
  1. ENBREL [Suspect]
     Active Substance: ETANERCEPT
     Indication: PSORIASIS
     Dosage: UNK, QWK
     Route: 065
     Dates: end: 201711

REACTIONS (3)
  - Drug ineffective [Unknown]
  - Adverse event [Unknown]
  - Sinusitis [Unknown]

NARRATIVE: CASE EVENT DATE: 201709
